FAERS Safety Report 17879348 (Version 3)
Quarter: 2020Q3

REPORT INFORMATION
  Report Type: Spontaneous
  Country: DE (occurrence: DE)
  Receive Date: 20200610
  Receipt Date: 20200708
  Transmission Date: 20201103
  Serious: Yes (Hospitalization)
  Sender: FDA-Public Use
  Company Number: DE-MYLANLABS-2020M1055211

PATIENT
  Age: 93 Year
  Sex: Male

DRUGS (5)
  1. CARVEDILOL. [Suspect]
     Active Substance: CARVEDILOL
     Indication: PRODUCT USED FOR UNKNOWN INDICATION
     Dosage: 6.25 MG 0.5?0?0.5?0
  2. GRANU FINK PROSTA [Concomitant]
     Dosage: NK MG, 1?0?1?0 2 1 DAY(S)
  3. TAMSULOSIN [Suspect]
     Active Substance: TAMSULOSIN
     Indication: PRODUCT USED FOR UNKNOWN INDICATION
     Dosage: 0.4 MG, 0?0?1?0
  4. RAMIPRIL. [Concomitant]
     Active Substance: RAMIPRIL
     Dosage: 10 MG, 0?0.5?0?0 5 MG 1 1 DAY(S)
  5. PHENPROCOUMON [Suspect]
     Active Substance: PHENPROCOUMON
     Indication: PRODUCT USED FOR UNKNOWN INDICATION
     Dosage: 3 MG, ACCORDING TO VALUE

REACTIONS (5)
  - Nocturia [Recovering/Resolving]
  - Tachycardia [Recovering/Resolving]
  - Dyspnoea [Recovering/Resolving]
  - General physical health deterioration [Recovering/Resolving]
  - Atrial fibrillation [Recovering/Resolving]
